FAERS Safety Report 6812695-3 (Version None)
Quarter: 2010Q3

REPORT INFORMATION
  Report Type: 
  Country: None (occurrence: None)
  Receive Date: 20100701
  Receipt Date: 20100624
  Transmission Date: 20110219
  Serious: Yes (Life-Threatening)
  Sender: FDA-Public Use
  Company Number: JP-ROCHE-712047

PATIENT
  Sex: Male
  Weight: 65 kg

DRUGS (22)
  1. TOCILIZUMAB [Suspect]
     Indication: RHEUMATOID ARTHRITIS
     Route: 041
     Dates: start: 20091106, end: 20091106
  2. TOCILIZUMAB [Suspect]
     Route: 041
     Dates: start: 20091204, end: 20091204
  3. TOCILIZUMAB [Suspect]
     Route: 041
     Dates: start: 20091228, end: 20091228
  4. TOCILIZUMAB [Suspect]
     Route: 041
     Dates: start: 20100212, end: 20100212
  5. TOCILIZUMAB [Suspect]
     Route: 041
     Dates: start: 20100326, end: 20100326
  6. TOCILIZUMAB [Suspect]
     Route: 041
     Dates: start: 20100423, end: 20100423
  7. TOCILIZUMAB [Suspect]
     Route: 041
     Dates: start: 20100520, end: 20100520
  8. TOCILIZUMAB [Suspect]
     Route: 041
     Dates: start: 20100617
  9. PREDONINE [Suspect]
     Indication: RHEUMATOID ARTHRITIS
     Dosage: DOSE FORM: PERORAL AGENT
     Route: 048
     Dates: end: 20091203
  10. PREDONINE [Suspect]
     Route: 048
     Dates: start: 20091204
  11. METHOTREXATE [Concomitant]
     Dosage: DOSE FORM: PERORAL AGENT
     Route: 048
  12. MEILAX [Concomitant]
     Dosage: DOSE FORM: PERORAL AGENT
     Route: 048
  13. BONALON [Concomitant]
     Dosage: DRUG NAME: BONALON 5MG(ALENDRONATE SODIUM HYDRATE)
     Route: 048
  14. REMERON [Concomitant]
     Route: 048
     Dates: start: 20100118, end: 20100123
  15. FAMOTIDINE [Concomitant]
     Dosage: DRUG NAME: FAMOTIDINE D(FAMOTIDINE)
     Route: 048
     Dates: start: 20100121
  16. SEROQUEL [Concomitant]
     Dosage: DRUG NAME:SEROQUEL(QUETIAPINE FUMARATE), DOSE FORM: PERORAL AGENT
     Route: 048
     Dates: start: 20100123
  17. DEPAKENE [Concomitant]
     Dosage: DOSE FORM: SUSTAINED-RELEASE TABLET
     Route: 048
     Dates: start: 20100125
  18. BENZALIN [Concomitant]
     Dosage: DOSE FORM: PERORAL AGENT
     Route: 048
     Dates: start: 20100125
  19. MAGNESIUM OXIDE [Concomitant]
     Dosage: DOSE FORM: POWDERED MEDICINE
     Route: 048
     Dates: start: 20100128
  20. TAKA-DIASTASE [Concomitant]
     Dosage: DRUG NAME: SM(TAKA-DIASTASE_NATURAL AGENTS COMBINED DRUG), DOSE FORM: POWDERED MEDICINE
     Route: 048
     Dates: start: 20100206
  21. MUCODYNE [Concomitant]
     Dosage: DOSE FORM: PERORAL AGENT
     Route: 048
     Dates: start: 20100305
  22. ZOLOFT [Concomitant]
     Dosage: DRUG NAME: JZOLOFT(SERTRALINE HYDROCHLORIDE)
     Route: 048
     Dates: start: 20100420

REACTIONS (1)
  - SUICIDE ATTEMPT [None]
